FAERS Safety Report 4641921-4 (Version None)
Quarter: 2005Q2

REPORT INFORMATION
  Report Type: 
  Country: None (occurrence: None)
  Receive Date: 20050420
  Receipt Date: 20050404
  Transmission Date: 20051028
  Serious: Yes (Death)
  Sender: FDA-Public Use
  Company Number: 430001L05USA

PATIENT
  Age: 58 Year

DRUGS (5)
  1. MITOXANTRONE [Suspect]
     Indication: NON-HODGKIN'S LYMPHOMA UNSPECIFIED HISTOLOGY INDOLENT STAGE IV
     Dosage: 10 MG/M2, 1 IN 1 CYCLE, INTRAVENOUS
     Route: 042
  2. FLUDARABINE PHOSPHATE [Suspect]
     Indication: NON-HODGKIN'S LYMPHOMA UNSPECIFIED HISTOLOGY INDOLENT STAGE IV
     Dosage: 75 MG/M2, 1 IN 1 CYCLE, INTRAVENOUS
     Route: 042
  3. DEXAMETHASONE [Suspect]
     Indication: NON-HODGKIN'S LYMPHOMA UNSPECIFIED HISTOLOGY INDOLENT STAGE IV
     Dosage: 100 MG, 1 IN 1 CYCLE, INTRAVENOUS
     Route: 042
  4. RITUXIMAB (RITUXIMAB) [Suspect]
     Indication: NON-HODGKIN'S LYMPHOMA UNSPECIFIED HISTOLOGY INDOLENT STAGE IV
     Dosage: 375 MG/M2, 1 IN 1 CYCLE, INTRAVENOUS
     Route: 042
  5. INTERFERON ALFA (INTERFERON ALFA) [Suspect]
     Indication: NON-HODGKIN'S LYMPHOMA UNSPECIFIED HISTOLOGY INDOLENT STAGE IV
     Dosage: 39 OTHER, 1 IN 1 MONTHS, SUBCUTANEOUS
     Route: 058

REACTIONS (2)
  - ACUTE MYELOID LEUKAEMIA [None]
  - MYELODYSPLASTIC SYNDROME [None]
